FAERS Safety Report 8879142 (Version 1)
Quarter: 2012Q4

REPORT INFORMATION
  Report Type: Spontaneous
  Country: US (occurrence: None)
  Receive Date: 20121031
  Receipt Date: 20121031
  Transmission Date: 20130627
  Serious: Yes (Death)
  Sender: FDA-Public Use
  Company Number: None

PATIENT
  Age: 68 Year
  Sex: Female

DRUGS (6)
  1. REVLIMID [Suspect]
     Indication: MULTIPLE MYELOMA
     Dosage: 25 mg qdx21d/28d orally
     Route: 048
  2. REVLIMID [Concomitant]
  3. DECADRON [Concomitant]
  4. LASIX [Concomitant]
  5. ZOVIRAX [Concomitant]
  6. OXYCODONE [Concomitant]

REACTIONS (5)
  - Disease progression [None]
  - Mental status changes [None]
  - Subdural haematoma [None]
  - Fall [None]
  - Plasma cell myeloma [None]
